FAERS Safety Report 9773691 (Version 3)
Quarter: 2014Q1

REPORT INFORMATION
  Report Type: Spontaneous
  Country: PT (occurrence: None)
  Receive Date: 20131218
  Receipt Date: 20140207
  Transmission Date: 20141002
  Serious: Yes (Hospitalization, Other)
  Sender: FDA-Public Use
  Company Number: AUR-APL-2013-10518

PATIENT
  Age: 15 Year
  Sex: Female

DRUGS (4)
  1. RISPERIDONE (RISPERIDONE) [Suspect]
     Indication: PSYCHOTIC DISORDER
  2. OLANZAPINE (OLANZAPINE) [Suspect]
     Indication: PSYCHOTIC DISORDER
  3. HALOPERIDOL [Suspect]
     Indication: PSYCHOTIC DISORDER
  4. PALIPERIDONE [Suspect]
     Indication: PSYCHOTIC DISORDER

REACTIONS (3)
  - Neuroleptic malignant syndrome [None]
  - Renal failure acute [None]
  - Hepatocellular injury [None]
